FAERS Safety Report 21708386 (Version 1)
Quarter: 2022Q4

REPORT INFORMATION
  Report Type: Report from Study
  Country: US (occurrence: US)
  Receive Date: 20221210
  Receipt Date: 20221210
  Transmission Date: 20230113
  Serious: No
  Sender: FDA-Public Use
  Company Number: US-002147023-NVSC2022US285360

PATIENT
  Age: 11 Year
  Sex: Male

DRUGS (1)
  1. ILARIS [Suspect]
     Active Substance: CANAKINUMAB
     Indication: Juvenile idiopathic arthritis
     Dosage: 100 MG, (EVERY 8 WEEKS)
     Route: 058
     Dates: start: 20191127

REACTIONS (1)
  - Influenza virus test positive [Unknown]

NARRATIVE: CASE EVENT DATE: 20221107
